FAERS Safety Report 11522060 (Version 1)
Quarter: 2015Q3

REPORT INFORMATION
  Report Type: Spontaneous
  Country: US (occurrence: US)
  Receive Date: 20150918
  Receipt Date: 20150918
  Transmission Date: 20151125
  Serious: No
  Sender: FDA-Public Use
  Company Number: US-ROCHE-727994

PATIENT
  Sex: Male

DRUGS (7)
  1. COPEGUS [Suspect]
     Active Substance: RIBAVIRIN
     Indication: HEPATITIS C
     Dosage: TAKEN BY MOUTH
     Route: 048
  2. ZOLOFT [Concomitant]
     Active Substance: SERTRALINE HYDROCHLORIDE
     Route: 065
  3. ZANTAC [Concomitant]
     Active Substance: RANITIDINE HYDROCHLORIDE
     Route: 065
  4. PEGASYS [Suspect]
     Active Substance: PEGINTERFERON ALFA-2A
     Indication: HEPATITIS C
     Route: 058
  5. METFORMIN [Concomitant]
     Active Substance: METFORMIN HYDROCHLORIDE
     Route: 065
  6. FLEXERIL [Concomitant]
     Active Substance: CYCLOBENZAPRINE HYDROCHLORIDE
     Route: 065
  7. NEURONTIN [Concomitant]
     Active Substance: GABAPENTIN
     Route: 065

REACTIONS (2)
  - Normal newborn [Unknown]
  - No adverse event [Unknown]
